FAERS Safety Report 5471493-6 (Version None)
Quarter: 2007Q3

REPORT INFORMATION
  Report Type: 
  Country: None (occurrence: None)
  Receive Date: 20070928
  Receipt Date: 20061114
  Transmission Date: 20080115
  Serious: No
  Sender: FDA-Public Use
  Company Number: US-BRISTOL-MYERS SQUIBB COMPANY-13578570

PATIENT
  Age: 78 Year
  Sex: Male
  Weight: 89 kg

DRUGS (1)
  1. DEFINITY [Suspect]
     Indication: STRESS ECHOCARDIOGRAM
     Route: 042
     Dates: start: 20061110

REACTIONS (2)
  - PRURITUS [None]
  - URTICARIA [None]
